FAERS Safety Report 5408931-0 (Version None)
Quarter: 2007Q3

REPORT INFORMATION
  Report Type: 
  Country: None (occurrence: None)
  Receive Date: 20070808
  Receipt Date: 20070727
  Transmission Date: 20080115
  Serious: Yes (Hospitalization, Other)
  Sender: FDA-Public Use
  Company Number: US-PFIZER INC-2007063704

PATIENT
  Sex: Female
  Weight: 52.727 kg

DRUGS (10)
  1. CHANTIX [Suspect]
     Indication: SMOKING CESSATION THERAPY
  2. PROTONIX [Concomitant]
  3. SYNTHROID [Concomitant]
  4. CENTRUM SILVER [Concomitant]
  5. CALCIUM WITH VITAMIN D [Concomitant]
  6. VITAMIN B6 [Concomitant]
  7. VITAMIN B-12 [Concomitant]
  8. FOLIC ACID [Concomitant]
  9. ASPIRIN [Concomitant]
  10. VITAMIN E [Concomitant]

REACTIONS (3)
  - COLITIS ISCHAEMIC [None]
  - INSOMNIA [None]
  - NAUSEA [None]
